FAERS Safety Report 15294340 (Version 1)
Quarter: 2018Q3

REPORT INFORMATION
  Report Type: Spontaneous
  Country: FR (occurrence: FR)
  Receive Date: 20180820
  Receipt Date: 20180820
  Transmission Date: 20181010
  Serious: Yes (Other)
  Sender: FDA-Public Use
  Company Number: FR-AUROBINDO-AUR-APL-2018-042234

PATIENT
  Age: 50 Year
  Sex: Female

DRUGS (1)
  1. PARACETAMOL [Suspect]
     Active Substance: ACETAMINOPHEN
     Indication: PRODUCT USED FOR UNKNOWN INDICATION
     Dosage: 2 GRAM IN TOTAL
     Route: 048
     Dates: start: 20180719, end: 20180719

REACTIONS (2)
  - Hypotension [Recovered/Resolved]
  - Analgesic drug level therapeutic [Recovered/Resolved]

NARRATIVE: CASE EVENT DATE: 20180719
